FAERS Safety Report 19891347 (Version 1)
Quarter: 2021Q3

REPORT INFORMATION
  Report Type: Spontaneous
  Country: CA (occurrence: CA)
  Receive Date: 20210928
  Receipt Date: 20210928
  Transmission Date: 20211014
  Serious: Yes (Hospitalization)
  Sender: FDA-Public Use
  Company Number: CA-PFIZER INC-2020512630

PATIENT
  Age: 64 Year
  Sex: Male

DRUGS (8)
  1. RUXIENCE [Suspect]
     Active Substance: RITUXIMAB-PVVR
     Indication: RHEUMATOID ARTHRITIS
     Dosage: 1000MG DAY 1 AND DAY 15
     Route: 042
     Dates: start: 20210226
  2. AMLODIPINE [Concomitant]
     Active Substance: AMLODIPINE BESYLATE
     Dosage: 1 DF UNK DOSE
  3. CODEINE [Concomitant]
     Active Substance: CODEINE
     Dosage: 1 DF, AS NEEDED
  4. RUXIENCE [Suspect]
     Active Substance: RITUXIMAB-PVVR
     Dosage: 1000MG DAY 1 AND DAY 15
     Route: 042
     Dates: start: 20210916
  5. TYLENOL WITH CODEINE [Concomitant]
     Active Substance: ACETAMINOPHEN\CODEINE PHOSPHATE
     Dosage: UNK
  6. PERINDOPRIL [Concomitant]
     Active Substance: PERINDOPRIL
     Dosage: UNK
  7. CELECOXIB. [Concomitant]
     Active Substance: CELECOXIB
     Dosage: 1 DF UNK DOSE
  8. OXYCODONE [Concomitant]
     Active Substance: OXYCODONE
     Dosage: UNK

REACTIONS (7)
  - Tooth infection [Unknown]
  - Ligament sprain [Not Recovered/Not Resolved]
  - Off label use [Unknown]
  - Oesophageal disorder [Recovering/Resolving]
  - Condition aggravated [Unknown]
  - Intentional product use issue [Unknown]
  - Pain [Unknown]

NARRATIVE: CASE EVENT DATE: 2021
